FAERS Safety Report 5112647-8 (Version None)
Quarter: 2006Q3

REPORT INFORMATION
  Report Type: 
  Country: None (occurrence: None)
  Receive Date: 20060918
  Receipt Date: 20060918
  Transmission Date: 20061208
  Serious: No
  Sender: FDA-Public Use
  Company Number: None

PATIENT
  Age: 35 Year
  Sex: Female

DRUGS (3)
  1. DEPAKOTE [Suspect]
     Indication: DEPRESSION
     Dosage: 250 MG PO BID
     Route: 048
     Dates: start: 20040301, end: 20050109
  2. DEPAKOTE [Suspect]
     Indication: MANIA
     Dosage: 250 MG PO BID
     Route: 048
     Dates: start: 20040301, end: 20050109
  3. NAPROSYN [Concomitant]

REACTIONS (11)
  - ABDOMINAL PAIN [None]
  - ALANINE AMINOTRANSFERASE INCREASED [None]
  - ANOREXIA [None]
  - ASPARTATE AMINOTRANSFERASE INCREASED [None]
  - BLOOD BILIRUBIN INCREASED [None]
  - CHROMATURIA [None]
  - FATIGUE [None]
  - HEPATIC ENZYME INCREASED [None]
  - HEPATOTOXICITY [None]
  - JAUNDICE [None]
  - NAUSEA [None]
